FAERS Safety Report 9639090 (Version 1)
Quarter: 2013Q4

REPORT INFORMATION
  Report Type: Spontaneous
  Country: US (occurrence: US)
  Receive Date: 20131022
  Receipt Date: 20131022
  Transmission Date: 20140711
  Serious: No
  Sender: FDA-Public Use
  Company Number: US-MYLANLABS-2013S1016676

PATIENT
  Age: 65 Year
  Sex: Female
  Weight: 58.97 kg

DRUGS (2)
  1. AMLODIPINE BESYLATE AND BENAZEPRIL HYDROCHLORIDE CAPSULES 5MG/40MG (AMLODIPINE BESYLATE, BENAZEPRIL) [Suspect]
     Indication: BLOOD PRESSURE INCREASED
     Dosage: QDAY
     Route: 048
     Dates: start: 201306
  2. CLONAZEPAM [Concomitant]
     Indication: ANXIETY

REACTIONS (1)
  - Nasal congestion [Not Recovered/Not Resolved]
